FAERS Safety Report 5872343-6 (Version None)
Quarter: 2008Q3

REPORT INFORMATION
  Report Type: 
  Country: None (occurrence: None)
  Receive Date: 20080905
  Receipt Date: 20080905
  Transmission Date: 20090109
  Serious: Yes (Other)
  Sender: FDA-Public Use
  Company Number: IT-WYE-G02051008

PATIENT
  Sex: Male

DRUGS (12)
  1. TAZOCIN [Suspect]
     Indication: PYREXIA
     Route: 042
     Dates: start: 20080807, end: 20080815
  2. TAZOCIN [Suspect]
     Indication: LEUKOPENIA
  3. GRANULOKINE [Concomitant]
  4. PERFALGAN [Concomitant]
  5. NEXIUM [Concomitant]
  6. ONCO-CARBIDE [Concomitant]
     Indication: POLYCYTHAEMIA VERA
  7. PLASIL [Concomitant]
  8. MYCOSTATIN [Concomitant]
  9. DIFLUCAN [Concomitant]
  10. KONAKION [Concomitant]
  11. ENAPREN [Concomitant]
  12. MAALOX [Concomitant]

REACTIONS (1)
  - JAUNDICE [None]
